FAERS Safety Report 20556462 (Version 3)
Quarter: 2022Q2

REPORT INFORMATION
  Report Type: Spontaneous
  Country: US (occurrence: US)
  Receive Date: 20220307
  Receipt Date: 20220429
  Transmission Date: 20220720
  Serious: Yes (Hospitalization, Other)
  Sender: FDA-Public Use
  Company Number: US-BEH-2022142749

PATIENT
  Sex: Female

DRUGS (4)
  1. HIZENTRA [Suspect]
     Active Substance: HUMAN IMMUNOGLOBULIN G
     Indication: Episcleritis
     Dosage: 14 GRAM, QW
     Route: 058
     Dates: start: 202001
  2. HIZENTRA [Suspect]
     Active Substance: HUMAN IMMUNOGLOBULIN G
     Indication: Immunodeficiency common variable
     Dosage: 1 GRAM, QW
     Route: 058
     Dates: start: 202001
  3. HIZENTRA [Suspect]
     Active Substance: HUMAN IMMUNOGLOBULIN G
     Indication: Immunoglobulins abnormal
     Dosage: 75 MILLILITER, QW
     Route: 058
     Dates: start: 202001
  4. HIZENTRA [Suspect]
     Active Substance: HUMAN IMMUNOGLOBULIN G
     Indication: Arthropathy

REACTIONS (6)
  - COVID-19 [Recovered/Resolved]
  - Dyspnoea [Unknown]
  - No adverse event [Unknown]
  - Off label use [Unknown]
  - Gastrointestinal necrosis [Unknown]
  - Large intestinal obstruction [Unknown]
